FAERS Safety Report 11223679 (Version 3)
Quarter: 2015Q3

REPORT INFORMATION
  Report Type: Spontaneous
  Country: US (occurrence: US)
  Receive Date: 20150629
  Receipt Date: 20150709
  Transmission Date: 20151125
  Serious: Yes (Hospitalization)
  Sender: FDA-Public Use
  Company Number: US-AUROBINDO-AUR-APL-2015-05378

PATIENT
  Age: 23 Year
  Sex: Male

DRUGS (2)
  1. OLANZAPINE. [Suspect]
     Active Substance: OLANZAPINE
     Indication: PRODUCT USED FOR UNKNOWN INDICATION
     Dosage: 900 MG, UNK
     Route: 065
  2. TRAZODONE [Suspect]
     Active Substance: TRAZODONE HYDROCHLORIDE
     Indication: PRODUCT USED FOR UNKNOWN INDICATION
     Route: 065

REACTIONS (10)
  - Mental status changes [Not Recovered/Not Resolved]
  - Overdose [Unknown]
  - Clonus [Unknown]
  - Dry skin [Unknown]
  - Miosis [Unknown]
  - Agitation [Unknown]
  - Hyperreflexia [Unknown]
  - Hyperthermia [Unknown]
  - Anticholinergic syndrome [Unknown]
  - Tachycardia [Recovered/Resolved]
